FAERS Safety Report 24665510 (Version 1)
Quarter: 2024Q4

REPORT INFORMATION
  Report Type: Spontaneous
  Country: DE (occurrence: DE)
  Receive Date: 20241126
  Receipt Date: 20241126
  Transmission Date: 20250115
  Serious: Yes (Other)
  Sender: ROCHE
  Company Number: DE-ROCHE-10000136455

PATIENT
  Sex: Male

DRUGS (2)
  1. OBINUTUZUMAB [Suspect]
     Active Substance: OBINUTUZUMAB
     Indication: Chronic lymphocytic leukaemia
     Dosage: 6 CYCLES UNTIL -JUL-2023
     Route: 065
     Dates: start: 20230227
  2. ACALABRUTINIB [Suspect]
     Active Substance: ACALABRUTINIB
     Indication: Chronic lymphocytic leukaemia
     Dosage: 6 CYCLE UNTIL AUG/2023
     Route: 065
     Dates: start: 20230227

REACTIONS (1)
  - Chronic lymphocytic leukaemia recurrent [Unknown]
